FAERS Safety Report 21700853 (Version 1)
Quarter: 2022Q4

REPORT INFORMATION
  Report Type: Spontaneous
  Country: CN (occurrence: CN)
  Receive Date: 20221208
  Receipt Date: 20221208
  Transmission Date: 20230113
  Serious: Yes (Other)
  Sender: FDA-Public Use
  Company Number: CN-MLMSERVICE-20221118-3929607-3

PATIENT
  Age: 28 Year
  Sex: Male

DRUGS (1)
  1. FINASTERIDE [Suspect]
     Active Substance: FINASTERIDE
     Indication: Androgenetic alopecia

REACTIONS (6)
  - Anxiety [Unknown]
  - Psychiatric symptom [Unknown]
  - Erectile dysfunction [Unknown]
  - Depression [Unknown]
  - Insomnia [Unknown]
  - Amnesia [Unknown]
